FAERS Safety Report 10951060 (Version 1)
Quarter: 2015Q1

REPORT INFORMATION
  Report Type: Spontaneous
  Country: US (occurrence: None)
  Receive Date: 20150226
  Receipt Date: 20150226
  Transmission Date: 20150721
  Serious: Yes (Other)
  Sender: FDA-Public Use
  Company Number: PHEH2014US015524

PATIENT

DRUGS (12)
  1. DILANTIN//PHENYTOIN (PHENYTOIN) [Concomitant]
     Dates: end: 2009
  2. KEPPRA [Concomitant]
     Active Substance: LEVETIRACETAM
  3. TOPAMAX [Concomitant]
     Active Substance: TOPIRAMATE
  4. VIMPAT [Concomitant]
     Active Substance: LACOSAMIDE
  5. TOPAMAX [Concomitant]
     Active Substance: TOPIRAMATE
  6. KEPPRA [Concomitant]
     Active Substance: LEVETIRACETAM
  7. TOPAMAX [Concomitant]
     Active Substance: TOPIRAMATE
  8. VIMPAT [Concomitant]
     Active Substance: LACOSAMIDE
  9. TEGRETOL [Suspect]
     Active Substance: CARBAMAZEPINE
     Indication: GENERALISED TONIC-CLONIC SEIZURE
     Dates: start: 2010
  10. TEGRETOL [Suspect]
     Active Substance: CARBAMAZEPINE
     Indication: EPILEPSY
     Dates: start: 2010
  11. TOPAMAX [Concomitant]
     Active Substance: TOPIRAMATE
  12. KEPPRA [Concomitant]
     Active Substance: LEVETIRACETAM
     Dates: start: 2011

REACTIONS (5)
  - Seizure [None]
  - Drug hypersensitivity [None]
  - Suicidal ideation [None]
  - Memory impairment [None]
  - Depression [None]
